FAERS Safety Report 16248140 (Version 1)
Quarter: 2019Q2

REPORT INFORMATION
  Report Type: Spontaneous
  Country: CA (occurrence: CA)
  Receive Date: 20190428
  Receipt Date: 20190428
  Transmission Date: 20190711
  Serious: Yes (Death, Other)
  Sender: FDA-Public Use
  Company Number: CA-AMGEN-CANSP2019065800

PATIENT
  Sex: Male

DRUGS (1)
  1. PANITUMUMAB [Suspect]
     Active Substance: PANITUMUMAB
     Indication: SQUAMOUS CELL CARCINOMA OF HEAD AND NECK
     Dosage: 9 MILLIGRAM/KILOGRAM (ON DAYS -7, 15 AND 36 OF RADIOTHERAPY)
     Route: 042

REACTIONS (2)
  - Pharyngeal haemorrhage [Fatal]
  - Off label use [Unknown]
